FAERS Safety Report 5503079-9 (Version None)
Quarter: 2007Q4

REPORT INFORMATION
  Report Type: 
  Country: None (occurrence: None)
  Receive Date: 20071031
  Receipt Date: 20071017
  Transmission Date: 20080405
  Serious: Yes (Hospitalization)
  Sender: FDA-Public Use
  Company Number: GR-RANBAXY-2007RR-10673

PATIENT

DRUGS (14)
  1. ACETAMINOPHEN [Suspect]
     Dosage: 500 MG, UNK
  2. PHYTOMENADIONE [Concomitant]
     Dosage: 10 MG, QD
  3. PIPERACILLIN [Concomitant]
     Dosage: 4 G, TID
  4. TAZOBACTAM [Concomitant]
     Dosage: 0.5 G, TID
  5. OMEPRAZOLE [Concomitant]
     Dosage: 20 MG, BID
  6. CIPROFLOXACIN [Concomitant]
     Dosage: 500 MG, BID
  7. CLINDAMYCIN HCL [Concomitant]
     Dosage: 600 UNK, QID
     Route: 042
  8. ENOXAPARIN SODIUM [Concomitant]
     Dosage: 40 MG, BID
     Route: 058
  9. ENOXAPARIN SODIUM [Concomitant]
     Dosage: 80 MG, QD
  10. ENOXAPARIN SODIUM [Concomitant]
     Dosage: 80 MG, BID
     Route: 058
  11. FOLIC ACID [Concomitant]
     Dosage: 5 MG, QD
  12. VITAMIN B COMPLEX CAP [Concomitant]
     Route: 048
  13. HEPARIN [Concomitant]
     Dosage: 3500 UNK, UNK
     Route: 042
  14. ACENOCOUMAROL [Concomitant]
     Route: 048

REACTIONS (2)
  - HYPERCOAGULATION [None]
  - PERIPHERAL ISCHAEMIA [None]
